FAERS Safety Report 9490541 (Version 1)
Quarter: 2013Q3

REPORT INFORMATION
  Report Type: Spontaneous
  Country: US (occurrence: None)
  Receive Date: 20130827
  Receipt Date: 20130827
  Transmission Date: 20140515
  Serious: No
  Sender: FDA-Public Use
  Company Number: None

PATIENT
  Age: 23 Year
  Sex: Male
  Weight: 79.38 kg

DRUGS (2)
  1. ESCITALOPRAM [Suspect]
     Indication: ANXIETY
     Dosage: 30/MO  10/MORNING, 10/NIGHT (MG) ORALLY, SWALLOWED?01/01/2009 - N/A, SWITCHED BACK TO NAME BRAND
     Route: 048
     Dates: start: 20090101
  2. CHEWABLE DAILY GUMMY-VITES [Concomitant]

REACTIONS (7)
  - Anxiety [None]
  - Palpitations [None]
  - Mydriasis [None]
  - Insomnia [None]
  - Cold sweat [None]
  - Suicidal ideation [None]
  - Product substitution issue [None]
